FAERS Safety Report 15334976 (Version 1)
Quarter: 2018Q3

REPORT INFORMATION
  Report Type: Spontaneous
  Country: US (occurrence: US)
  Receive Date: 20180827
  Receipt Date: 20180827
  Transmission Date: 20181010
  Serious: Yes (Other)
  Sender: FDA-Public Use
  Company Number: None

PATIENT
  Age: 36 Year
  Sex: Male

DRUGS (5)
  1. LEXAPRO [Concomitant]
     Active Substance: ESCITALOPRAM OXALATE
  2. MAVYRET [Suspect]
     Active Substance: GLECAPREVIR\PIBRENTASVIR
     Indication: HEPATITIS C
     Route: 048
     Dates: start: 20180802, end: 20180827
  3. SEROQUEL [Concomitant]
     Active Substance: QUETIAPINE FUMARATE
  4. GABAPENTIN. [Concomitant]
     Active Substance: GABAPENTIN
  5. OXYCODONE [Concomitant]
     Active Substance: OXYCODONE

REACTIONS (4)
  - Alopecia [None]
  - Libido decreased [None]
  - Fatigue [None]
  - Migraine [None]

NARRATIVE: CASE EVENT DATE: 20180827
